FAERS Safety Report 16797793 (Version 1)
Quarter: 2019Q3

REPORT INFORMATION
  Report Type: Spontaneous
  Country: US (occurrence: US)
  Receive Date: 20190912
  Receipt Date: 20190912
  Transmission Date: 20191005
  Serious: No
  Sender: FDA-Public Use
  Company Number: US-009507513-1909USA000054

PATIENT
  Sex: Male

DRUGS (3)
  1. LEVODOPA [Suspect]
     Active Substance: LEVODOPA
     Indication: PARKINSON^S DISEASE
     Dosage: 84 MILLIGRAM, PRN, NOT TO EXCEED 5 TIMES A DAY
     Dates: start: 20190731
  2. AMANTADINE. [Suspect]
     Active Substance: AMANTADINE HYDROCHLORIDE
     Dosage: UNKNOWN
     Dates: end: 2019
  3. SINEMET [Suspect]
     Active Substance: CARBIDOPA\LEVODOPA
     Dosage: UNKNOWN
     Route: 048
     Dates: end: 2019

REACTIONS (1)
  - Asthenia [Unknown]

NARRATIVE: CASE EVENT DATE: 2019
